FAERS Safety Report 7107416-3 (Version None)
Quarter: 2010Q4

REPORT INFORMATION
  Report Type: 
  Country: None (occurrence: None)
  Receive Date: 20101111
  Receipt Date: 20101111
  Transmission Date: 20110411
  Serious: No
  Sender: FDA-Public Use
  Company Number: None

PATIENT
  Age: 55 Year
  Sex: Male
  Weight: 90.3 kg

DRUGS (1)
  1. LISINOPRIL [Suspect]
     Dosage: 20 MG EVERY DAY PO
     Route: 048
     Dates: start: 20100310, end: 20101017

REACTIONS (1)
  - ANGIOEDEMA [None]
